FAERS Safety Report 5159600-6 (Version None)
Quarter: 2006Q4

REPORT INFORMATION
  Report Type: 
  Country: None (occurrence: None)
  Receive Date: 20061129
  Receipt Date: 20061121
  Transmission Date: 20070319
  Serious: Yes (Hospitalization)
  Sender: FDA-Public Use
  Company Number: DE-JNJFOC-20061104624

PATIENT
  Sex: Female

DRUGS (12)
  1. LEVOFLOXACIN [Suspect]
     Indication: ERYSIPELAS
     Route: 042
  2. LEVOFLOXACIN [Suspect]
     Route: 048
  3. TOREM [Concomitant]
     Route: 048
  4. ATACAND [Concomitant]
     Route: 048
  5. CARMEN [Concomitant]
     Route: 048
  6. MOXONIDIN [Concomitant]
     Route: 048
  7. BELOC ZOK MITE [Concomitant]
     Route: 048
  8. ZOCOR [Concomitant]
     Route: 048
  9. NOVAMINSULFON [Concomitant]
     Route: 048
  10. PANTOZOL [Concomitant]
     Route: 048
  11. INSUMAN RAPID [Concomitant]
     Route: 058
  12. INSUMAN BASAL [Concomitant]
     Route: 058

REACTIONS (8)
  - ATRIAL FIBRILLATION [None]
  - ATRIOVENTRICULAR BLOCK SECOND DEGREE [None]
  - BLOOD PRESSURE INCREASED [None]
  - BRAIN HYPOXIA [None]
  - BURNING SENSATION [None]
  - DIZZINESS [None]
  - EPILEPSY [None]
  - HEADACHE [None]
